FAERS Safety Report 7654086-1 (Version None)
Quarter: 2011Q3

REPORT INFORMATION
  Report Type: 
  Country: None (occurrence: None)
  Receive Date: 20110803
  Receipt Date: 20110725
  Transmission Date: 20111222
  Serious: Yes (Other)
  Sender: FDA-Public Use
  Company Number: PHFR2011GB01224

PATIENT
  Sex: Female
  Weight: 65 kg

DRUGS (5)
  1. METFORMIN HCL [Concomitant]
     Indication: WEIGHT INCREASED
  2. CLOZAPINE [Suspect]
     Indication: BIPOLAR DISORDER
  3. ARIPIPRAZOLE [Concomitant]
  4. CLOZAPINE [Suspect]
     Indication: SCHIZOAFFECTIVE DISORDER
  5. CLOZAPINE [Suspect]
     Indication: PERSONALITY DISORDER
     Route: 048
     Dates: start: 20110128

REACTIONS (3)
  - INTENTIONAL SELF-INJURY [None]
  - SCAR [None]
  - HAEMORRHAGE [None]
